FAERS Safety Report 18533630 (Version 1)
Quarter: 2020Q4

REPORT INFORMATION
  Report Type: Spontaneous
  Country: US (occurrence: US)
  Receive Date: 20201123
  Receipt Date: 20201123
  Transmission Date: 20210114
  Serious: Yes (Other)
  Sender: FDA-Public Use
  Company Number: US-ALLERGAN-2044909US

PATIENT
  Sex: Female

DRUGS (6)
  1. VRAYLAR [Suspect]
     Active Substance: CARIPRAZINE
     Dosage: 1.5 MG, QD
     Dates: start: 202002, end: 2020
  2. VRAYLAR [Suspect]
     Active Substance: CARIPRAZINE
     Indication: BIPOLAR DISORDER
     Dosage: 1.5 MG, QD
     Dates: start: 202010
  3. LUNESTA [Concomitant]
     Active Substance: ESZOPICLONE
  4. TRAZODONE [Concomitant]
     Active Substance: TRAZODONE HYDROCHLORIDE
  5. ZYPREXA [Concomitant]
     Active Substance: OLANZAPINE
     Dosage: UNK
     Dates: start: 2020
  6. LEXAPRO [Concomitant]
     Active Substance: ESCITALOPRAM OXALATE

REACTIONS (1)
  - Cerebrovascular accident [Unknown]
